FAERS Safety Report 24718930 (Version 1)
Quarter: 2024Q4

REPORT INFORMATION
  Report Type: Spontaneous
  Country: FR (occurrence: FR)
  Receive Date: 20241210
  Receipt Date: 20241210
  Transmission Date: 20250114
  Serious: Yes (Death, Hospitalization)
  Sender: ABBVIE
  Company Number: None

PATIENT
  Age: 54 Year
  Sex: Female
  Weight: 77 kg

DRUGS (3)
  1. VENETOCLAX [Suspect]
     Active Substance: VENETOCLAX
     Indication: Acute myeloid leukaemia
     Dosage: 100 MG
     Route: 048
     Dates: start: 20241001, end: 20241021
  2. AZACITIDINE [Suspect]
     Active Substance: AZACITIDINE
     Indication: Acute myeloid leukaemia
     Dosage: 25 MG/ML, POUDRE POUR SUSPENSION INJECTABLE
     Route: 058
     Dates: start: 20241001, end: 20241008
  3. RUXOLITINIB [Suspect]
     Active Substance: RUXOLITINIB
     Indication: Acute myeloid leukaemia
     Dosage: 10 MG 1-0-1?LAST ADMIN DATE: 2024
     Route: 048
     Dates: start: 20241001

REACTIONS (2)
  - Septic shock [Fatal]
  - Arthritis [Recovered/Resolved]

NARRATIVE: CASE EVENT DATE: 20241026
